FAERS Safety Report 25073463 (Version 1)
Quarter: 2025Q1

REPORT INFORMATION
  Report Type: Report from Study
  Country: US (occurrence: US)
  Receive Date: 20250313
  Receipt Date: 20250313
  Transmission Date: 20250409
  Serious: No
  Sender: ACADIA PHARMACEUTICALS
  Company Number: US-ACADIA PHARMACEUTICALS INC.-ACA-2025-PIM-002703

PATIENT
  Age: 77 Year
  Sex: Female

DRUGS (43)
  1. NUPLAZID [Suspect]
     Active Substance: PIMAVANSERIN TARTRATE
     Indication: Parkinson^s disease
     Dosage: 34 MILLIGRAM, QD
     Route: 048
     Dates: start: 20241022
  2. ABRYSVO [Concomitant]
     Active Substance: RECOMBINANT STABILIZED RSV A PREFUSION F ANTIGEN\RECOMBINANT STABILIZED RSV B PREFUSION F ANTIGEN
  3. BISOPROLOL FUMARATE [Concomitant]
     Active Substance: BISOPROLOL FUMARATE
  4. BOOSTRIX [Concomitant]
     Active Substance: TETANUS TOXOID, REDUCED DIPHTHERIA TOXOID AND ACELLULAR PERTUSSIS VACCINE, ADSORBED ANTIGENS
  5. BUPROPION [Concomitant]
     Active Substance: BUPROPION
  6. BUPROPION [Concomitant]
     Active Substance: BUPROPION
  7. CARBIDOPA\LEVODOPA [Concomitant]
     Active Substance: CARBIDOPA\LEVODOPA
  8. COMIRNATY [Concomitant]
  9. COMIRNATY [Concomitant]
  10. COMIRNATY [Concomitant]
  11. PFIZER-BIONTECH COVID-19 VACCINE [Concomitant]
     Active Substance: TOZINAMERAN
  12. ELIQUIS [Concomitant]
     Active Substance: APIXABAN
  13. ESOMEPRAZOLE MAGNESIUM [Concomitant]
     Active Substance: ESOMEPRAZOLE MAGNESIUM
  14. FLUAD NOS [Concomitant]
     Active Substance: INFLUENZA VIRUS VACCINE
  15. FLUZONE HIGH-DOSE NOS [Concomitant]
     Active Substance: INFLUENZA A VIRUS A/CALIFORNIA/7/2009 X-179A (H1N1) ANTIGEN (FORMALDEHYDE INACTIVATED)\INFLUENZA A V
  16. FREESTYLE LITE BLOOD GLUCOSE STRIPS [Concomitant]
  17. GABAPENTIN [Concomitant]
     Active Substance: GABAPENTIN
  18. GEMTESA [Concomitant]
     Active Substance: VIBEGRON
  19. GLYBURIDE [Concomitant]
     Active Substance: GLYBURIDE
  20. GLYBURIDE [Concomitant]
     Active Substance: GLYBURIDE
  21. JANUVIA [Concomitant]
     Active Substance: SITAGLIPTIN PHOSPHATE
  22. JARDIANCE [Concomitant]
     Active Substance: EMPAGLIFLOZIN
  23. LEVOTHYROXINE [Concomitant]
     Active Substance: LEVOTHYROXINE
  24. LEVOTHYROXINE [Concomitant]
     Active Substance: LEVOTHYROXINE
  25. METHYLPREDNISOLONE [Concomitant]
     Active Substance: METHYLPREDNISOLONE
  26. MIRABEGRON [Concomitant]
     Active Substance: MIRABEGRON
  27. MYRBETRIQ [Concomitant]
     Active Substance: MIRABEGRON
  28. NAPROXEN [Concomitant]
     Active Substance: NAPROXEN
  29. ONDANSETRON [Concomitant]
     Active Substance: ONDANSETRON
  30. PLENVU [Concomitant]
     Active Substance: ASCORBIC ACID\POLYETHYLENE GLYCOL 3350\POTASSIUM CHLORIDE\SODIUM ASCORBATE\SODIUM CHLORIDE\SODIUM SU
  31. PNEUMOVAX 23 [Concomitant]
     Active Substance: PNEUMOCOCCAL VACCINE, POLYVALENT 23
  32. PREDNISONE [Concomitant]
     Active Substance: PREDNISONE
  33. PREMARIN [Concomitant]
     Active Substance: ESTROGENS, CONJUGATED
  34. REXULTI [Concomitant]
     Active Substance: BREXPIPRAZOLE
  35. ROSUVASTATIN [Concomitant]
     Active Substance: ROSUVASTATIN
  36. SERTRALINE [Concomitant]
     Active Substance: SERTRALINE HYDROCHLORIDE
  37. TRAMADOL [Concomitant]
     Active Substance: TRAMADOL
  38. TRAZODONE [Concomitant]
     Active Substance: TRAZODONE HYDROCHLORIDE
  39. TRAZODONE [Concomitant]
     Active Substance: TRAZODONE HYDROCHLORIDE
  40. TRIAMCINOLONE [Concomitant]
     Active Substance: TRIAMCINOLONE
  41. VALSARTANIHOTZ [Concomitant]
  42. VERAPAMIL [Concomitant]
     Active Substance: VERAPAMIL HYDROCHLORIDE
  43. VERAPAMIR [Concomitant]

REACTIONS (2)
  - Intentional dose omission [Not Recovered/Not Resolved]
  - Drug ineffective [Not Recovered/Not Resolved]

NARRATIVE: CASE EVENT DATE: 20250206
